FAERS Safety Report 4618578-1 (Version None)
Quarter: 2005Q1

REPORT INFORMATION
  Report Type: 
  Country: None (occurrence: None)
  Receive Date: 20050323
  Receipt Date: 20050308
  Transmission Date: 20050727
  Serious: Yes (Death, Life-Threatening, Hospitalization, Other)
  Sender: FDA-Public Use
  Company Number: DE-2004-037238

PATIENT
  Age: 69 Year
  Sex: Male
  Weight: 59 kg

DRUGS (7)
  1. CAMPATH [Suspect]
     Indication: CHRONIC LYMPHOCYTIC LEUKAEMIA RECURRENT
     Dosage: 30 MG, 3XWEEK NOT REGULARLY, SUBCUTANEOUS
     Route: 058
     Dates: start: 20040824, end: 20041103
  2. ACYCLOVIR [Concomitant]
  3. CO-TRIMOXAZOLE           (CO-TRIMOXAZOLE) [Concomitant]
  4. NEULASTA [Concomitant]
  5. INTRAGLOBIN                   (IMMUNOGLOBULIN HUMAN NORMAL) [Concomitant]
  6. ALLOPURINOL [Concomitant]
  7. TRANSFUSIONS [Concomitant]

REACTIONS (24)
  - AMAUROSIS [None]
  - APHASIA [None]
  - BACTERIAL SEPSIS [None]
  - BLINDNESS UNILATERAL [None]
  - BLOOD SODIUM DECREASED [None]
  - CANDIDIASIS [None]
  - CARDIAC FAILURE [None]
  - CRANIAL NERVE PARALYSIS [None]
  - DEHYDRATION [None]
  - EATING DISORDER [None]
  - EPSTEIN-BARR VIRUS ANTIBODY POSITIVE [None]
  - FLUID INTAKE REDUCED [None]
  - GENERAL PHYSICAL HEALTH DETERIORATION [None]
  - IMMUNE SYSTEM DISORDER [None]
  - MELAENA [None]
  - OESOPHAGEAL CANDIDIASIS [None]
  - OROPHARYNGEAL CANDIDIASIS [None]
  - PANCYTOPENIA [None]
  - PERSONALITY DISORDER [None]
  - PNEUMONIA [None]
  - PNEUMONIA ESCHERICHIA [None]
  - RETINITIS [None]
  - SPUTUM CULTURE POSITIVE [None]
  - THERAPY NON-RESPONDER [None]
